FAERS Safety Report 5398485-X (Version None)
Quarter: 2007Q3

REPORT INFORMATION
  Report Type: 
  Country: None (occurrence: None)
  Receive Date: 20070726
  Receipt Date: 20070320
  Transmission Date: 20080115
  Serious: Yes (Other)
  Sender: FDA-Public Use
  Company Number: US-AMGEN-KDL212600

PATIENT
  Sex: Male
  Weight: 101.2 kg

DRUGS (7)
  1. PROCRIT [Suspect]
     Indication: ANAEMIA OF MALIGNANT DISEASE
     Dates: start: 20070222
  2. COMPAZINE [Concomitant]
  3. PREDNISONE TAB [Concomitant]
  4. NEUPOGEN [Concomitant]
  5. VINCRISTINE [Concomitant]
     Dates: start: 20070103
  6. CYTOXAN [Concomitant]
     Dates: start: 20070103
  7. DOXIL [Concomitant]
     Dates: start: 20070103

REACTIONS (2)
  - CONVULSION [None]
  - FALL [None]
